FAERS Safety Report 13610376 (Version 1)
Quarter: 2017Q2

REPORT INFORMATION
  Report Type: Spontaneous
  Country: US (occurrence: US)
  Receive Date: 20170602
  Receipt Date: 20170602
  Transmission Date: 20170830
  Serious: No
  Sender: FDA-Public Use
  Company Number: None

PATIENT
  Age: 63 Year
  Sex: Male

DRUGS (1)
  1. SUSTIVA [Suspect]
     Active Substance: EFAVIRENZ

REACTIONS (3)
  - Vertebral lesion [None]
  - Computerised tomogram abnormal [None]
  - Liver disorder [None]

NARRATIVE: CASE EVENT DATE: 20170528
